FAERS Safety Report 13462962 (Version 6)
Quarter: 2018Q1

REPORT INFORMATION
  Report Type: Spontaneous
  Country: US (occurrence: US)
  Receive Date: 20170420
  Receipt Date: 20180125
  Transmission Date: 20180508
  Serious: Yes (Hospitalization)
  Sender: FDA-Public Use
  Company Number: US-JNJFOC-20170414685

PATIENT
  Age: 57 Year
  Sex: Female

DRUGS (6)
  1. SERTRALINE [Concomitant]
     Active Substance: SERTRALINE HYDROCHLORIDE
     Indication: DEPRESSION
     Dosage: ONE AND HALF PILL IN MORNING
     Route: 065
  2. ALENDRONATE [Concomitant]
     Active Substance: ALENDRONATE SODIUM
     Indication: OSTEOPOROSIS
     Route: 065
     Dates: start: 2015
  3. DURAGESIC [Suspect]
     Active Substance: FENTANYL
     Indication: PAIN
     Route: 062
     Dates: start: 2012
  4. METHOTREXATE. [Concomitant]
     Active Substance: METHOTREXATE
     Indication: RHEUMATOID ARTHRITIS
     Route: 065
     Dates: start: 2010
  5. KLONAZEPAM [Concomitant]
     Active Substance: CLONAZEPAM
     Indication: ANXIETY
     Dosage: ONE IN MORNING AND HALF IN LATE AFTERNOON
     Route: 065
  6. MORPHINE [Concomitant]
     Active Substance: MORPHINE
     Indication: BREAKTHROUGH PAIN
     Route: 065
     Dates: start: 2015

REACTIONS (7)
  - Drug dose omission [Unknown]
  - Rheumatoid arthritis [Not Recovered/Not Resolved]
  - Product adhesion issue [Unknown]
  - Wrong technique in product usage process [Unknown]
  - Osteoarthritis [Unknown]
  - Product quality issue [Unknown]
  - Muscle spasms [Unknown]

NARRATIVE: CASE EVENT DATE: 2013
